FAERS Safety Report 9780809 (Version 4)
Quarter: 2014Q1

REPORT INFORMATION
  Report Type: Spontaneous
  Country: JP (occurrence: JP)
  Receive Date: 20131224
  Receipt Date: 20140228
  Transmission Date: 20141002
  Serious: Yes (Hospitalization)
  Sender: FDA-Public Use
  Company Number: JP-ASTRAZENECA-2013SE92571

PATIENT
  Age: 67 Year
  Sex: Male
  Weight: 68 kg

DRUGS (6)
  1. CRESTOR [Suspect]
     Indication: HYPERLIPIDAEMIA
     Route: 048
     Dates: end: 20130304
  2. CONIEL [Concomitant]
     Indication: HYPERTENSION
     Route: 048
  3. DIOVAN [Concomitant]
     Indication: HYPERTENSION
     Route: 048
  4. HARNAL D [Concomitant]
     Indication: BENIGN PROSTATIC HYPERPLASIA
     Route: 048
  5. RIZABEN [Concomitant]
     Indication: KELOID SCAR
     Route: 048
     Dates: start: 20130104, end: 20130304
  6. KENACORT [Concomitant]
     Indication: KELOID SCAR
     Route: 065
     Dates: start: 20130104, end: 20130215

REACTIONS (1)
  - Drug-induced liver injury [Recovered/Resolved]
